FAERS Safety Report 9419850 (Version 1)
Quarter: 2013Q3

REPORT INFORMATION
  Report Type: Spontaneous
  Country: US (occurrence: None)
  Receive Date: 20130723
  Receipt Date: 20130723
  Transmission Date: 20140515
  Serious: Yes (Other)
  Sender: FDA-Public Use
  Company Number: None

PATIENT
  Age: 61 Year
  Sex: Male
  Weight: 93.44 kg

DRUGS (1)
  1. SAPHRIS [Suspect]
     Indication: DEPRESSION
     Route: 060
     Dates: start: 20130705, end: 20130719

REACTIONS (6)
  - Convulsion [None]
  - Nightmare [None]
  - Muscle spasms [None]
  - Blood pressure increased [None]
  - Heart rate increased [None]
  - Confusional state [None]
